FAERS Safety Report 4687629-0 (Version None)
Quarter: 2005Q2

REPORT INFORMATION
  Report Type: 
  Country: None (occurrence: None)
  Receive Date: 20050610
  Receipt Date: 20050606
  Transmission Date: 20051028
  Serious: Yes (Life-Threatening, Hospitalization, Other)
  Sender: FDA-Public Use
  Company Number: PHEH2005US06346

PATIENT
  Age: 17 Year
  Sex: Female

DRUGS (12)
  1. RITALIN [Suspect]
     Indication: DEPRESSION
     Dosage: 30 MG, QD
     Route: 048
     Dates: start: 20050201
  2. LEXAPRO [Suspect]
     Indication: DEPRESSION
     Dosage: 10 MG, QD
     Route: 048
     Dates: start: 20040625, end: 20040701
  3. LEXAPRO [Suspect]
     Dosage: 20 MG, QD
     Route: 048
     Dates: start: 20040702, end: 20040708
  4. LEXAPRO [Suspect]
     Dosage: 30 MG, QD
     Route: 048
     Dates: start: 20040709, end: 20040715
  5. LEXAPRO [Suspect]
     Dosage: 40 MG, QD
     Route: 048
     Dates: start: 20040716, end: 20040722
  6. LEXAPRO [Suspect]
     Dosage: 50 MG, QD
     Route: 048
     Dates: start: 20040722, end: 20041201
  7. LEXAPRO [Suspect]
     Dosage: 30 MG, QD
     Route: 048
     Dates: start: 20041201, end: 20050101
  8. LEXAPRO [Suspect]
     Dosage: 50 MG, QD
     Route: 048
     Dates: start: 20050101
  9. ELAVIL [Suspect]
     Indication: DEPRESSION
     Dosage: 50 MG, QD
     Route: 048
  10. KLONOPIN [Suspect]
     Indication: DEPRESSION
     Dosage: 1 MG, QD
     Route: 048
     Dates: start: 20040626
  11. ABILIFY [Suspect]
     Indication: DEPRESSION
     Dosage: UNK, UNK
     Route: 048
     Dates: start: 20050117, end: 20050430
  12. GEODON [Suspect]
     Indication: DEPRESSION
     Dosage: 40 MG, QD
     Route: 048
     Dates: start: 20050430

REACTIONS (6)
  - DEPRESSION [None]
  - DRUG INEFFECTIVE [None]
  - HALLUCINATION [None]
  - POST-TRAUMATIC STRESS DISORDER [None]
  - SUICIDAL IDEATION [None]
  - SUICIDE ATTEMPT [None]
